FAERS Safety Report 13395979 (Version 1)
Quarter: 2017Q2

REPORT INFORMATION
  Report Type: Spontaneous
  Country: US (occurrence: US)
  Receive Date: 20170403
  Receipt Date: 20170403
  Transmission Date: 20170830
  Serious: Yes (Other)
  Sender: FDA-Public Use
  Company Number: US-GLAXOSMITHKLINE-US2017045683

PATIENT
  Sex: Female

DRUGS (1)
  1. DICLOFENAC SODIUM. [Suspect]
     Active Substance: DICLOFENAC SODIUM
     Indication: ARTHRALGIA
     Dosage: UNK
     Route: 061

REACTIONS (8)
  - Arthralgia [Unknown]
  - Malaise [Unknown]
  - Back pain [Unknown]
  - Ear pain [Not Recovered/Not Resolved]
  - Drug administered at inappropriate site [Unknown]
  - Product use in unapproved indication [Unknown]
  - Influenza [Not Recovered/Not Resolved]
  - Knee arthroplasty [Recovered/Resolved]

NARRATIVE: CASE EVENT DATE: 201606
